FAERS Safety Report 13061581 (Version 1)
Quarter: 2016Q4

REPORT INFORMATION
  Report Type: Spontaneous
  Country: US (occurrence: US)
  Receive Date: 20161226
  Receipt Date: 20161226
  Transmission Date: 20170207
  Serious: No
  Sender: FDA-Public Use
  Company Number: US-NOVEN PHARMACEUTICALS, INC.-US2016000854

PATIENT

DRUGS (4)
  1. TYLENOL [Concomitant]
     Active Substance: ACETAMINOPHEN
  2. MINIVELLE [Suspect]
     Active Substance: ESTRADIOL
     Indication: MUSCLE SPASMS
  3. IBUPROFEN. [Concomitant]
     Active Substance: IBUPROFEN
  4. MINIVELLE [Suspect]
     Active Substance: ESTRADIOL
     Indication: MENORRHAGIA
     Dosage: UNK, UNKNOWN
     Route: 062
     Dates: start: 201603

REACTIONS (2)
  - No adverse event [Unknown]
  - Off label use [Unknown]

NARRATIVE: CASE EVENT DATE: 201603
